FAERS Safety Report 24011587 (Version 2)
Quarter: 2024Q3

REPORT INFORMATION
  Report Type: Spontaneous
  Country: US (occurrence: US)
  Receive Date: 20240625
  Receipt Date: 20240709
  Transmission Date: 20241016
  Serious: Yes (Other)
  Sender: APELLIS PHARMACEUTICALS
  Company Number: PVI-US-2024-001031

PATIENT

DRUGS (1)
  1. SYFOVRE [Suspect]
     Active Substance: PEGCETACOPLAN
     Indication: Dry age-related macular degeneration
     Route: 031
     Dates: start: 20240206, end: 20240528

REACTIONS (2)
  - Uveitis [Unknown]
  - Abdominal discomfort [Unknown]

NARRATIVE: CASE EVENT DATE: 20240603
